FAERS Safety Report 10044511 (Version 1)
Quarter: 2014Q1

REPORT INFORMATION
  Report Type: Spontaneous
  Country: ZA (occurrence: ZA)
  Receive Date: 20140328
  Receipt Date: 20140328
  Transmission Date: 20141002
  Serious: Yes (Other)
  Sender: FDA-Public Use
  Company Number: ZA-SA-2014SA034935

PATIENT
  Age: 34 Year
  Sex: Female

DRUGS (1)
  1. CLEXANE [Suspect]
     Indication: PROPHYLAXIS
     Dosage: SINCE 7 WEEKS GESTATION
     Route: 058
     Dates: start: 2014

REACTIONS (7)
  - Premature separation of placenta [Unknown]
  - Exposure during pregnancy [Unknown]
  - Antiphospholipid syndrome [Unknown]
  - Protein S decreased [Unknown]
  - Coagulopathy [Unknown]
  - Blood immunoglobulin G increased [Unknown]
  - Off label use [Unknown]
